FAERS Safety Report 17984402 (Version 1)
Quarter: 2020Q3

REPORT INFORMATION
  Report Type: Spontaneous
  Country: NL (occurrence: FR)
  Receive Date: 20200706
  Receipt Date: 20200706
  Transmission Date: 20201103
  Serious: Yes (Hospitalization)
  Sender: FDA-Public Use
  Company Number: FR-FRESENIUS KABI-FK202006568

PATIENT
  Age: 42 Year
  Sex: Male
  Weight: 70 kg

DRUGS (6)
  1. SUFENTANIL CITRATE. [Interacting]
     Active Substance: SUFENTANIL CITRATE
     Indication: ANAESTHESIA
     Route: 042
     Dates: start: 20200611
  2. PROPOFOL (MANUFACTURER UNKNOWN) [Suspect]
     Active Substance: PROPOFOL
     Indication: ANAESTHESIA
     Route: 042
     Dates: start: 20200611
  3. ATRACURIUM [Interacting]
     Active Substance: ATRACURIUM
     Indication: ANAESTHESIA
     Route: 042
     Dates: start: 20200611
  4. ROPIVACAINE FRESENIUS KABI (NOT SPECIFIED) [Interacting]
     Active Substance: ROPIVACAINE
     Indication: LOCAL ANAESTHESIA
     Route: 065
     Dates: start: 20200611
  5. LIDOCAINE. [Interacting]
     Active Substance: LIDOCAINE
     Indication: LOCAL ANAESTHESIA
     Route: 042
     Dates: start: 20200611
  6. SEVOFLURANE. [Interacting]
     Active Substance: SEVOFLURANE
     Indication: ANAESTHESIA
     Route: 055
     Dates: start: 20200611

REACTIONS (1)
  - Tonic convulsion [Recovered/Resolved]

NARRATIVE: CASE EVENT DATE: 20200611
